FAERS Safety Report 5975086-3 (Version None)
Quarter: 2008Q4

REPORT INFORMATION
  Report Type: 
  Country: None (occurrence: None)
  Receive Date: 20081128
  Receipt Date: 20081120
  Transmission Date: 20090506
  Serious: Yes (Death, Life-Threatening)
  Sender: FDA-Public Use
  Company Number: 08H-163-0315223-00

PATIENT
  Age: 45 Year
  Sex: Male

DRUGS (1)
  1. HYDROMORPHONE HCL [Suspect]
     Indication: BACK PAIN
     Dosage: 1 MG/M1, 2 MG DOSE 10 MIN. LOCKOUT, INTRAVENOUS
     Route: 042
     Dates: end: 20081010

REACTIONS (1)
  - CARDIO-RESPIRATORY ARREST [None]
